FAERS Safety Report 7864356-X (Version None)
Quarter: 2011Q4

REPORT INFORMATION
  Report Type: 
  Country: None (occurrence: None)
  Receive Date: 20111028
  Receipt Date: 20111021
  Transmission Date: 20120403
  Serious: Yes (Hospitalization)
  Sender: FDA-Public Use
  Company Number: CN-ASTELLAS-2011US006996

PATIENT
  Sex: Female
  Weight: 40 kg

DRUGS (1)
  1. TARCEVA [Suspect]
     Indication: NON-SMALL CELL LUNG CANCER
     Dosage: 150 MG, UID/QD, INTERRUPTED FOR 5 DAYS
     Route: 048
     Dates: start: 20110810

REACTIONS (6)
  - ATRIAL FIBRILLATION [None]
  - POLLAKIURIA [None]
  - LUNG INFECTION [None]
  - RASH [None]
  - DECREASED APPETITE [None]
  - DIARRHOEA [None]
